FAERS Safety Report 17621881 (Version 2)
Quarter: 2020Q2

REPORT INFORMATION
  Report Type: Report from Study
  Country: US (occurrence: US)
  Receive Date: 20200403
  Receipt Date: 20200529
  Transmission Date: 20200713
  Serious: Yes (Other)
  Sender: FDA-Public Use
  Company Number: US-JNJFOC-20200340159

PATIENT
  Age: 41 Year
  Sex: Male
  Weight: 118.04 kg

DRUGS (3)
  1. SPRAVATO [Suspect]
     Active Substance: ESKETAMINE
     Indication: DEPRESSION
  2. SPRAVATO [Suspect]
     Active Substance: ESKETAMINE
     Dates: start: 20200312, end: 20200312
  3. SPRAVATO [Suspect]
     Active Substance: ESKETAMINE
     Dates: start: 20200316

REACTIONS (10)
  - Soliloquy [Unknown]
  - Crying [Unknown]
  - Somnolence [Recovered/Resolved]
  - Headache [Recovered/Resolved]
  - Illusion [Unknown]
  - Vision blurred [Recovered/Resolved]
  - Sedation [Recovered/Resolved]
  - Tremor [Unknown]
  - Feeling abnormal [Recovered/Resolved]
  - Dissociation [Recovered/Resolved]

NARRATIVE: CASE EVENT DATE: 20200312
